FAERS Safety Report 15041527 (Version 3)
Quarter: 2018Q4

REPORT INFORMATION
  Report Type: Spontaneous
  Country: US (occurrence: US)
  Receive Date: 20180621
  Receipt Date: 20181204
  Transmission Date: 20190204
  Serious: No
  Sender: FDA-Public Use
  Company Number: US-BRISTOL-MYERS SQUIBB COMPANY-BMS-2018-057381

PATIENT
  Age: 67 Year
  Sex: Male
  Weight: 64.85 kg

DRUGS (1)
  1. ORENCIA [Suspect]
     Active Substance: ABATACEPT
     Indication: RHEUMATOID ARTHRITIS
     Dosage: UNK
     Route: 065
     Dates: start: 20180612

REACTIONS (6)
  - Back pain [Unknown]
  - Chills [Unknown]
  - Full blood count decreased [Unknown]
  - Joint swelling [Unknown]
  - Blood sodium decreased [Unknown]
  - Nausea [Unknown]

NARRATIVE: CASE EVENT DATE: 20180614
